FAERS Safety Report 7524769-2 (Version None)
Quarter: 2011Q2

REPORT INFORMATION
  Report Type: 
  Country: None (occurrence: None)
  Receive Date: 20110602
  Receipt Date: 20110602
  Transmission Date: 20111010
  Serious: Yes (Other)
  Sender: FDA-Public Use
  Company Number: None

PATIENT
  Age: 57 Year
  Sex: Female
  Weight: 78 kg

DRUGS (1)
  1. AVELOX [Suspect]
     Indication: COUGH
     Dosage: 400 MG DAILY PO
     Route: 048
     Dates: start: 20110513, end: 20110523

REACTIONS (2)
  - MYALGIA [None]
  - ARTHRALGIA [None]
